FAERS Safety Report 13836326 (Version 2)
Quarter: 2017Q3

REPORT INFORMATION
  Report Type: Report from Study
  Country: US (occurrence: US)
  Receive Date: 20170804
  Receipt Date: 20170908
  Transmission Date: 20171127
  Serious: Yes (Other)
  Sender: FDA-Public Use
  Company Number: PHEH2017US023821

PATIENT
  Sex: Female

DRUGS (2)
  1. TOBI [Suspect]
     Active Substance: TOBRAMYCIN
     Dosage: 300 MG (NEB), Q12H
     Route: 042
  2. TOBI [Suspect]
     Active Substance: TOBRAMYCIN
     Indication: PRODUCT USED FOR UNKNOWN INDICATION
     Dosage: 300 MG (NEB), Q12H
     Route: 042

REACTIONS (6)
  - Dyspnoea [Recovered/Resolved]
  - Aspergillus infection [Recovered/Resolved]
  - Pseudomonas infection [Recovered/Resolved]
  - Wheezing [Recovered/Resolved]
  - Pulmonary congestion [Recovered/Resolved]
  - Incorrect route of drug administration [Unknown]
